FAERS Safety Report 20642367 (Version 1)
Quarter: 2022Q1

REPORT INFORMATION
  Report Type: Spontaneous
  Country: JP (occurrence: JP)
  Receive Date: 20220328
  Receipt Date: 20220328
  Transmission Date: 20220423
  Serious: Yes (Hospitalization)
  Sender: FDA-Public Use
  Company Number: JP-ASTELLAS-2022JP004929

PATIENT
  Age: 78 Year
  Sex: Female

DRUGS (1)
  1. XOSPATA [Suspect]
     Active Substance: GILTERITINIB
     Indication: Acute leukaemia
     Dosage: UNK UNK, UNKNOWN FREQ.
     Route: 048
     Dates: start: 20220210

REACTIONS (2)
  - Neutrophil count decreased [Unknown]
  - Infection [Unknown]
